FAERS Safety Report 7012008-0 (Version None)
Quarter: 2010Q3

REPORT INFORMATION
  Report Type: 
  Country: None (occurrence: None)
  Receive Date: 20100924
  Receipt Date: 20100918
  Transmission Date: 20110219
  Serious: Yes (Life-Threatening, Hospitalization)
  Sender: FDA-Public Use
  Company Number: PHHY2010MX62396

PATIENT
  Sex: Female

DRUGS (1)
  1. RASILEZ HCT [Suspect]
     Indication: HYPERTENSION
     Dosage: 1 TABLET (300/12.5 MG) PER DAY
     Route: 048
     Dates: start: 20090911

REACTIONS (7)
  - ANORECTAL OPERATION [None]
  - FALL [None]
  - HAEMORRHOID OPERATION [None]
  - HAEMORRHOIDS [None]
  - JOINT INJURY [None]
  - RECTAL ABSCESS [None]
  - SURGERY [None]
